FAERS Safety Report 10252123 (Version 1)
Quarter: 2014Q2

REPORT INFORMATION
  Report Type: Spontaneous
  Country: GB (occurrence: None)
  Receive Date: 20140619
  Receipt Date: 20140619
  Transmission Date: 20141212
  Serious: Yes (Other)
  Sender: FDA-Public Use
  Company Number: AUR-APL-2014-06392

PATIENT
  Age: 55 Year
  Sex: Male

DRUGS (4)
  1. SIMVASTATIN [Suspect]
     Indication: PROPHYLAXIS
     Dosage: 10 MG, UNK, ORAL
     Route: 048
     Dates: start: 201301, end: 201405
  2. ASPIRIN ( ACETYLSALICYLIC ACID) [Concomitant]
  3. DILTIAZEM ( DILTIAZEM) [Concomitant]
  4. PERINDOPRIL (PERINDOPRIL) [Concomitant]

REACTIONS (1)
  - Idiopathic pulmonary fibrosis [None]
